FAERS Safety Report 19061401 (Version 3)
Quarter: 2021Q2

REPORT INFORMATION
  Report Type: Report from Study
  Country: US (occurrence: US)
  Receive Date: 20210326
  Receipt Date: 20210519
  Transmission Date: 20210717
  Serious: Yes (Other)
  Sender: FDA-Public Use
  Company Number: NVSC2021US065147

PATIENT
  Age: 82 Year
  Sex: Female

DRUGS (3)
  1. PREDNISOLONE ACETATE. [Suspect]
     Active Substance: PREDNISOLONE ACETATE
     Indication: INTRAOCULAR PRESSURE INCREASED
  2. DUREZOL [Concomitant]
     Active Substance: DIFLUPREDNATE
     Indication: IRITIS
     Dosage: UNK
     Route: 065
     Dates: start: 20200422
  3. PREDNISOLONE ACETATE. [Suspect]
     Active Substance: PREDNISOLONE ACETATE
     Indication: IRITIS
     Dosage: 1?6/DAY
     Route: 047

REACTIONS (1)
  - Glaucoma [Not Recovered/Not Resolved]

NARRATIVE: CASE EVENT DATE: 201808
